FAERS Safety Report 6375111-4 (Version None)
Quarter: 2009Q3

REPORT INFORMATION
  Report Type: 
  Country: None (occurrence: None)
  Receive Date: 20090917
  Receipt Date: 20090917
  Transmission Date: 20100115
  Serious: No
  Sender: FDA-Public Use
  Company Number: None

PATIENT
  Age: 75 Year
  Sex: Male
  Weight: 94.8018 kg

DRUGS (1)
  1. DOXAZOSIN MESYLATE [Suspect]
     Indication: PROSTATOMEGALY
     Dates: start: 20090621, end: 20090825

REACTIONS (6)
  - BLOOD PRESSURE SYSTOLIC INCREASED [None]
  - DRUG INEFFECTIVE [None]
  - HEADACHE [None]
  - HEART RATE INCREASED [None]
  - NOCTURIA [None]
  - PALPITATIONS [None]
